FAERS Safety Report 4460685-0 (Version None)
Quarter: 2004Q3

REPORT INFORMATION
  Report Type: 
  Country: None (occurrence: None)
  Receive Date: 20040928
  Receipt Date: 20040719
  Transmission Date: 20050211
  Serious: No
  Sender: FDA-Public Use
  Company Number: US-GLAXOSMITHKLINE-A0518795A

PATIENT
  Sex: Female

DRUGS (5)
  1. ADVAIR DISKUS 100/50 [Suspect]
     Indication: ASTHMA
     Route: 055
  2. FLONASE [Suspect]
     Route: 045
  3. COMBIVENT [Concomitant]
  4. ZITHROMAX [Concomitant]
  5. PREDNISONE [Concomitant]

REACTIONS (1)
  - MOUTH ULCERATION [None]
